FAERS Safety Report 6780054-8 (Version None)
Quarter: 2010Q2

REPORT INFORMATION
  Report Type: 
  Country: None (occurrence: None)
  Receive Date: 20100618
  Receipt Date: 20100608
  Transmission Date: 20101027
  Serious: Yes (Other)
  Sender: FDA-Public Use
  Company Number: US-PFIZER INC-2010073563

PATIENT
  Sex: Female
  Weight: 63.492 kg

DRUGS (1)
  1. LIPITOR [Suspect]
     Indication: HIGH DENSITY LIPOPROTEIN DECREASED
     Dosage: 10 MG, 1X/DAY
     Route: 048
     Dates: start: 20000101

REACTIONS (4)
  - AUTOIMMUNE DISORDER [None]
  - HEART RATE IRREGULAR [None]
  - RAYNAUD'S PHENOMENON [None]
  - RHEUMATOID ARTHRITIS [None]
